FAERS Safety Report 7462643-0 (Version None)
Quarter: 2011Q2

REPORT INFORMATION
  Report Type: 
  Country: None (occurrence: None)
  Receive Date: 20110506
  Receipt Date: 20110427
  Transmission Date: 20111010
  Serious: Yes (Other)
  Sender: FDA-Public Use
  Company Number: PHHY2011FR37247

PATIENT
  Sex: Male

DRUGS (1)
  1. EXJADE [Suspect]
     Dates: start: 20080701, end: 20081101

REACTIONS (6)
  - COMPLEX REGIONAL PAIN SYNDROME [None]
  - CYTOLYTIC HEPATITIS [None]
  - PAIN IN EXTREMITY [None]
  - SENSORY DISTURBANCE [None]
  - GAIT DISTURBANCE [None]
  - SERUM FERRITIN INCREASED [None]
